FAERS Safety Report 13689419 (Version 1)
Quarter: 2017Q2

REPORT INFORMATION
  Report Type: Spontaneous
  Country: US (occurrence: US)
  Receive Date: 20170625
  Receipt Date: 20170625
  Transmission Date: 20170830
  Serious: Yes (Other)
  Sender: FDA-Public Use
  Company Number: None

PATIENT
  Age: 83 Year
  Sex: Male
  Weight: 103.5 kg

DRUGS (2)
  1. PRADAXA [Suspect]
     Active Substance: DABIGATRAN ETEXILATE MESYLATE
     Indication: ATRIAL FIBRILLATION
     Dosage: ?          OTHER STRENGTH:MG;QUANTITY:2 CAPSULE(S);?
  2. ARREDS2 [Concomitant]

REACTIONS (2)
  - Tinnitus [None]
  - Feeling hot [None]

NARRATIVE: CASE EVENT DATE: 20170625
